FAERS Safety Report 24093388 (Version 1)
Quarter: 2024Q3

REPORT INFORMATION
  Report Type: Spontaneous
  Country: US (occurrence: US)
  Receive Date: 20240715
  Receipt Date: 20240715
  Transmission Date: 20241016
  Serious: No
  Sender: FOUNDATION CONSUMER HEALTHCARE
  Company Number: US-FOUNDATIONCONSUMERHC-2024-US-026242

PATIENT
  Age: 20 Year
  Sex: Female

DRUGS (4)
  1. TAKE ACTION [Suspect]
     Active Substance: LEVONORGESTREL
     Indication: Post coital contraception
     Dosage: 1.5 MG TAB, 1 TIME
     Route: 048
     Dates: start: 20240504, end: 20240504
  2. DEXTROAMPHET SACCHARAT, AMPHET ASPARTATE, DEXTROAMPHET SULFATE AND AMP [Concomitant]
     Active Substance: AMPHETAMINE ASPARTATE\AMPHETAMINE SULFATE\DEXTROAMPHETAMINE SACCHARATE\DEXTROAMPHETAMINE SULFATE
     Dosage: 1 DOSE BY MOUTH EVERY MORNING
  3. amphetamine salts IR 10 mg [Concomitant]
     Dosage: 1 DOSE BY MOUTH AS NEEDED
  4. lamotrigine 25 mg ER [Concomitant]
     Dosage: 1 DOSE BY MOUTH EVERY MORNING

REACTIONS (11)
  - Dysmenorrhoea [Not Recovered/Not Resolved]
  - Vision blurred [Recovered/Resolved]
  - Dehydration [Unknown]
  - Condition aggravated [Recovered/Resolved]
  - Dizziness [Recovered/Resolved]
  - Dizziness [Recovered/Resolved]
  - Vaginal haemorrhage [Not Recovered/Not Resolved]
  - Self-induced vomiting [Recovered/Resolved]
  - Nausea [Recovered/Resolved]
  - Dizziness [Recovered/Resolved]
  - Hypoacusis [Recovered/Resolved]

NARRATIVE: CASE EVENT DATE: 20240504
